FAERS Safety Report 6232547-X (Version None)
Quarter: 2009Q2

REPORT INFORMATION
  Report Type: 
  Country: None (occurrence: None)
  Receive Date: 20090617
  Receipt Date: 20090605
  Transmission Date: 20091009
  Serious: Yes (Hospitalization, Other)
  Sender: FDA-Public Use
  Company Number: DE-ELI_LILLY_AND_COMPANY-DE200903006926

PATIENT
  Sex: Female

DRUGS (3)
  1. FORTEO [Suspect]
     Indication: OSTEOPOROSIS
     Dosage: 20 UG, DAILY (1/D)
     Route: 058
     Dates: start: 20081201
  2. TARGIN [Concomitant]
     Indication: PAIN
     Dosage: 1 D/F, 2/D
     Route: 048
     Dates: start: 20081124
  3. OSTEOPLUS                          /00944201/ [Concomitant]
     Dosage: 1 D/F, DAILY (1/D)
     Route: 065

REACTIONS (1)
  - BREAST CANCER IN SITU [None]
